FAERS Safety Report 20930776 (Version 1)
Quarter: 2022Q2

REPORT INFORMATION
  Report Type: Spontaneous
  Country: SI (occurrence: SI)
  Receive Date: 20220608
  Receipt Date: 20220608
  Transmission Date: 20220721
  Serious: Yes (Other)
  Sender: FDA-Public Use
  Company Number: SI-ENDO PHARMACEUTICALS INC-2022-003539

PATIENT
  Age: 26 Year
  Sex: Male

DRUGS (2)
  1. AVEED [Suspect]
     Active Substance: TESTOSTERONE UNDECANOATE
     Indication: Olfacto genital dysplasia
     Dosage: UNK UNKNOWN, UNKNOWN
     Route: 065
  2. TESTOSTERONE ENANTHATE [Suspect]
     Active Substance: TESTOSTERONE ENANTHATE
     Indication: Olfacto genital dysplasia
     Dosage: UNK UNKNOWN, UNKNOWN
     Route: 065

REACTIONS (1)
  - Prolactin-producing pituitary tumour [Recovering/Resolving]
